FAERS Safety Report 10765654 (Version 2)
Quarter: 2015Q1

REPORT INFORMATION
  Report Type: Spontaneous
  Country: JP (occurrence: None)
  Receive Date: 20150203
  Receipt Date: 20150310
  Transmission Date: 20150721
  Serious: Yes (Hospitalization)
  Sender: FDA-Public Use
  Company Number: JP-20150008

PATIENT
  Age: 83 Year
  Sex: Female

DRUGS (4)
  1. LIPIODOL ULTRA-FLUIDE [Suspect]
     Active Substance: ETHIODIZED OIL
     Indication: THERAPEUTIC EMBOLISATION
     Dosage: INTRA-ARTERIAL ???
     Route: 013
  2. PENTAZOCINE [Concomitant]
     Active Substance: PENTAZOCINE
  3. NBCA(N-BUTYL CYANOACRYLATE) [Concomitant]
  4. DIAZEPAM. [Concomitant]
     Active Substance: DIAZEPAM

REACTIONS (5)
  - Brain oedema [None]
  - Post procedural complication [None]
  - Cerebrovascular disorder [None]
  - Product use issue [None]
  - Cerebral infarction [None]
